FAERS Safety Report 18314409 (Version 1)
Quarter: 2020Q3

REPORT INFORMATION
  Report Type: Report from Study
  Country: US (occurrence: US)
  Receive Date: 20200925
  Receipt Date: 20200925
  Transmission Date: 20201103
  Serious: No
  Sender: FDA-Public Use
  Company Number: NVSC2020US261593

PATIENT
  Sex: Female

DRUGS (2)
  1. AFINITOR DISPERZ [Suspect]
     Active Substance: EVEROLIMUS
     Indication: TUBEROUS SCLEROSIS COMPLEX
     Dosage: 5 MG, QD
     Route: 048
     Dates: start: 20180520
  2. AFINITOR DISPERZ [Suspect]
     Active Substance: EVEROLIMUS
     Indication: SEIZURE

REACTIONS (1)
  - Amenorrhoea [Not Recovered/Not Resolved]
